FAERS Safety Report 21342096 (Version 4)
Quarter: 2022Q4

REPORT INFORMATION
  Report Type: Report from Study
  Country: US (occurrence: US)
  Receive Date: 20220916
  Receipt Date: 20221110
  Transmission Date: 20230112
  Serious: Yes (Other)
  Sender: FDA-Public Use
  Company Number: US-PFIZER INC-PV202200061878

PATIENT
  Age: 73 Year
  Sex: Male
  Weight: 93 kg

DRUGS (22)
  1. LIPITOR [Suspect]
     Active Substance: ATORVASTATIN CALCIUM
     Indication: Amyloidosis senile
     Dosage: UNK, 1X/DAY QD
     Route: 065
  2. LIPITOR [Suspect]
     Active Substance: ATORVASTATIN CALCIUM
     Indication: Cardiac amyloidosis
  3. ELIQUIS [Suspect]
     Active Substance: APIXABAN
     Indication: Amyloidosis senile
     Dosage: 5 MILLIGRAM, BID (START DATE; 16-FEB-2022)
     Route: 048
  4. ELIQUIS [Suspect]
     Active Substance: APIXABAN
     Indication: Cerebrovascular accident prophylaxis
     Dosage: UNK
     Route: 065
  5. ELIQUIS [Suspect]
     Active Substance: APIXABAN
     Indication: Cardiac amyloidosis
  6. ALLOPURINOL [Suspect]
     Active Substance: ALLOPURINOL
     Indication: Product used for unknown indication
     Dosage: 100 MG, DAILY (TAKE 1 TABLET (100 MG)
     Route: 048
  7. ALLOPURINOL [Suspect]
     Active Substance: ALLOPURINOL
     Dosage: 100 MG, 1X/DAY
     Route: 048
  8. METOPROLOL TARTRATE [Suspect]
     Active Substance: METOPROLOL TARTRATE
     Indication: Product used for unknown indication
     Dosage: 25 MG, 2X/DAY (TAKE 1 TABLET (25 MG))
     Route: 048
  9. LOSARTAN [Suspect]
     Active Substance: LOSARTAN
     Indication: Product used for unknown indication
     Dosage: 50 MG, DAILY (TAKE 1 TABLET (50 MG))
     Route: 048
  10. FLUOXETINE [Suspect]
     Active Substance: FLUOXETINE HYDROCHLORIDE
     Indication: Product used for unknown indication
     Dosage: 40 MG, 2X/DAY (TAKE 1 CAPSULE (40 MG))
     Route: 048
  11. OMEGA-3 FATTY ACIDS\VITAMINS [Suspect]
     Active Substance: OMEGA-3 FATTY ACIDS\VITAMINS
     Indication: Product used for unknown indication
     Dosage: UNK (350 MG-235 MG- 90 MG-597 MG)
     Route: 048
  12. ZETIA [Suspect]
     Active Substance: EZETIMIBE
     Indication: Product used for unknown indication
     Dosage: 10 MG, 1X/DAY (TAKE 1 TABLET (10 MG)) (START DATE: 13-JUL-2022)
     Route: 048
  13. PLAVIX [Suspect]
     Active Substance: CLOPIDOGREL BISULFATE
     Indication: Product used for unknown indication
     Dosage: 75 MILLIGRAM QD
     Route: 065
  14. ISOSORBIDE MONONITRATE [Suspect]
     Active Substance: ISOSORBIDE MONONITRATE
     Indication: Product used for unknown indication
     Dosage: 30 MG, 1X/DAY (30 MG ORAL TABLET, ONCE DAILY IN THE MORNING])
     Route: 048
  15. TOPROL XL [Suspect]
     Active Substance: METOPROLOL SUCCINATE
     Indication: Product used for unknown indication
     Dosage: UNK UNK, 2X/DAY (25 MG AT 1/2-TAB BID)
     Route: 065
  16. IMDUR [Suspect]
     Active Substance: ISOSORBIDE MONONITRATE
     Indication: Product used for unknown indication
     Dosage: 30 MG, DAILY QD
     Route: 065
  17. BRILINTA [Suspect]
     Active Substance: TICAGRELOR
     Indication: Product used for unknown indication
     Dosage: UNK
     Route: 065
  18. ASPIRIN [Suspect]
     Active Substance: ASPIRIN
     Indication: Product used for unknown indication
     Dosage: UNK
     Route: 065
  19. FERROUS SULFATE [Concomitant]
     Active Substance: FERROUS SULFATE
     Indication: Product used for unknown indication
     Dosage: 325 MG, 2X/DAY ([TAKE 1 TABLET (325 MG) )
     Route: 048
  20. ALBUTEROL SULFATE [Concomitant]
     Active Substance: ALBUTEROL SULFATE
     Indication: Product used for unknown indication
     Dosage: UNK, AS NEEDED (INHALE 1-2 PUFFS(90-180 MCG)) PRN
     Route: 065
  21. CLOPIDOGREL [Concomitant]
     Active Substance: CLOPIDOGREL BISULFATE
     Indication: Product used for unknown indication
     Dosage: 75 MG, 1X/DAY (TAKE 1 TABLET (75 MG))
     Route: 048
  22. ATORVASTATIN [Concomitant]
     Active Substance: ATORVASTATIN
     Indication: Product used for unknown indication
     Dosage: 80 MILLIGRAM, QD
     Route: 048

REACTIONS (23)
  - Atrial fibrillation [Unknown]
  - Cardiac amyloidosis [Unknown]
  - Coronary artery stenosis [Unknown]
  - Chronic kidney disease [Unknown]
  - Carotid artery stenosis [Unknown]
  - Carotid artery occlusion [Unknown]
  - Carotid arteriosclerosis [Unknown]
  - Dyspnoea exertional [Unknown]
  - Pulmonary fibrosis [Unknown]
  - Chest pain [Unknown]
  - Dyspnoea [Unknown]
  - Arteriosclerosis [Unknown]
  - Palpitations [Unknown]
  - Amyloidosis senile [Unknown]
  - Pulmonary calcification [Unknown]
  - Decreased appetite [Unknown]
  - Amnesia [Unknown]
  - Pulmonary mass [Unknown]
  - Abnormal loss of weight [Unknown]
  - Fatigue [Unknown]
  - Malaise [Unknown]
  - Gingival bleeding [Unknown]
  - Back pain [Unknown]

NARRATIVE: CASE EVENT DATE: 20220201
